FAERS Safety Report 12827323 (Version 1)
Quarter: 2016Q4

REPORT INFORMATION
  Report Type: Spontaneous
  Country: US (occurrence: US)
  Receive Date: 20161007
  Receipt Date: 20161007
  Transmission Date: 20170207
  Serious: No
  Sender: FDA-Public Use
  Company Number: US-WATSON-2011-11740

PATIENT
  Sex: Male

DRUGS (3)
  1. FENTANYL-25 (WATSON LABORATORIES) [Suspect]
     Active Substance: FENTANYL
     Dosage: 25 MCG, EVERY 72 HOURS
     Route: 062
     Dates: start: 201106, end: 20110724
  2. FENTANYL-25 (WATSON LABORATORIES) [Suspect]
     Active Substance: FENTANYL
     Indication: DEMYELINATING POLYNEUROPATHY
     Dosage: 25 MCG, EVERY 72 HOURS
     Route: 062
     Dates: start: 20110724
  3. FENTANYL-25 (WATSON LABORATORIES) [Suspect]
     Active Substance: FENTANYL
     Indication: PAIN
     Dosage: 25 MCG, UNKNOWN
     Route: 062
     Dates: start: 2015, end: 2015

REACTIONS (5)
  - Stupor [Recovered/Resolved]
  - Intentional product use issue [Unknown]
  - Drug ineffective [Not Recovered/Not Resolved]
  - Withdrawal syndrome [Recovered/Resolved]
  - Dyspnoea [Recovered/Resolved]

NARRATIVE: CASE EVENT DATE: 2011
